FAERS Safety Report 5231168-5 (Version None)
Quarter: 2007Q1

REPORT INFORMATION
  Report Type: 
  Country: None (occurrence: None)
  Receive Date: 20070205
  Receipt Date: 20070205
  Transmission Date: 20070707
  Serious: Yes (Hospitalization)
  Sender: FDA-Public Use
  Company Number: None

PATIENT
  Age: 52 Year
  Sex: Male
  Weight: 123.8 kg

DRUGS (7)
  1. CIPRO [Suspect]
     Indication: CELLULITIS
     Dosage: 1 TAB Q 12 H PO
     Route: 048
     Dates: start: 20060910, end: 20060916
  2. CLINDAMYCIN [Concomitant]
  3. METHADONE HCL [Concomitant]
  4. QUETIAPINE FUMARATE [Concomitant]
  5. METOPROLOL TARTRATE [Concomitant]
  6. OXYCODONE [Concomitant]
  7. PHYTONADIONE [Concomitant]

REACTIONS (3)
  - OEDEMA PERIPHERAL [None]
  - RASH [None]
  - SKIN DISCOLOURATION [None]
